FAERS Safety Report 7547628-8 (Version None)
Quarter: 2011Q2

REPORT INFORMATION
  Report Type: 
  Country: None (occurrence: None)
  Receive Date: 20110614
  Receipt Date: 20110607
  Transmission Date: 20111010
  Serious: Yes (Death, Other)
  Sender: FDA-Public Use
  Company Number: JP-CELGENEUS-087-21880-11060984

PATIENT
  Sex: Male

DRUGS (28)
  1. MUCOSTA [Concomitant]
     Indication: PROPHYLAXIS
     Dosage: 300 MILLIGRAM
     Route: 048
  2. OXYCONTIN [Concomitant]
     Dosage: 10 MILLIGRAM
     Route: 048
     Dates: start: 20101015, end: 20101021
  3. OXYCONTIN [Concomitant]
     Dosage: 10 MILLIGRAM
     Route: 048
     Dates: start: 20101130, end: 20101130
  4. FUROSEMIDE [Concomitant]
     Dosage: 40 MILLIGRAM
     Route: 051
     Dates: start: 20101111, end: 20101129
  5. REVLIMID [Suspect]
     Dosage: 10 MILLIGRAM
     Route: 048
     Dates: start: 20101112, end: 20101130
  6. AMIODARONE HCL [Concomitant]
     Indication: CARDIAC FAILURE
     Dosage: 200 MILLIGRAM
     Route: 048
     Dates: start: 20091105
  7. VANCOMYCIN [Concomitant]
     Indication: INFECTION
     Dosage: 1 GRAM
     Route: 041
     Dates: start: 20101108, end: 20101111
  8. OXYCONTIN [Concomitant]
     Dosage: 10 MILLIGRAM
     Route: 048
     Dates: start: 20101023, end: 20101025
  9. REVLIMID [Suspect]
     Indication: ACUTE MYELOID LEUKAEMIA
     Dosage: 10 MILLIGRAM
     Route: 048
     Dates: start: 20101015, end: 20101104
  10. ALOSITOL [Concomitant]
     Indication: PROPHYLAXIS
     Dosage: 200 MILLIGRAM
     Route: 048
  11. LUPRAC [Concomitant]
     Indication: CARDIAC FAILURE
     Dosage: 4 MILLIGRAM
     Route: 048
     Dates: start: 20091124
  12. OXYCONTIN [Concomitant]
     Dosage: 20 MILLIGRAM
     Route: 048
     Dates: start: 20101109, end: 20101129
  13. LASIX [Concomitant]
     Indication: CARDIAC FAILURE
     Dosage: 40 MILLIGRAM
     Route: 048
     Dates: start: 20090901
  14. WARFARIN SODIUM [Concomitant]
     Indication: CARDIAC FAILURE
     Dosage: 2 MILLIGRAM
     Route: 048
     Dates: start: 20090901
  15. LANSOPRAZOLE [Concomitant]
     Dosage: 15 MILLIGRAM
     Route: 048
     Dates: start: 20091101
  16. LANIRAPID [Concomitant]
     Indication: CARDIAC FAILURE
     Dosage: .1 MILLIGRAM
     Route: 048
     Dates: start: 20091223
  17. HUMULIN R [Concomitant]
     Indication: DIABETES MELLITUS
     Dosage: 12-30U
     Route: 058
     Dates: start: 20101014
  18. MEROPENEM [Concomitant]
     Indication: CARDIAC FAILURE
     Dosage: 1.5 GRAM
     Route: 041
     Dates: start: 20101023, end: 20101111
  19. OXYCONTIN [Concomitant]
     Dosage: 20 MILLIGRAM
     Route: 048
     Dates: start: 20101022, end: 20101022
  20. OXYCONTIN [Concomitant]
     Dosage: 10 MILLIGRAM
     Route: 048
     Dates: start: 20101104, end: 20101108
  21. FUROSEMIDE [Concomitant]
     Dosage: 60 MILLIGRAM
     Route: 051
     Dates: start: 20101130, end: 20101130
  22. DIART [Concomitant]
     Indication: CARDIAC FAILURE
     Dosage: 60 MILLIGRAM
     Route: 048
     Dates: start: 20091112
  23. HUMULIN N [Concomitant]
     Indication: DIABETES MELLITUS
     Dosage: 5-10U
     Route: 058
     Dates: start: 20101014
  24. CEFEPIME HYDROCHLORIDE [Concomitant]
     Indication: CARDIAC FAILURE
     Dosage: 3 GRAM
     Route: 041
     Dates: start: 20101017, end: 20101022
  25. OXYCONTIN [Concomitant]
     Dosage: 20 MILLIGRAM
     Route: 048
     Dates: start: 20101026, end: 20101103
  26. FUROSEMIDE [Concomitant]
     Dosage: 20 MILLIGRAM
     Route: 051
     Dates: start: 20101110, end: 20101110
  27. PIMOBENDAN [Concomitant]
     Indication: CARDIAC FAILURE
     Dosage: 5 MILLIGRAM
     Route: 048
  28. HYDREA [Concomitant]
     Indication: ACUTE MYELOID LEUKAEMIA
     Dosage: 1000 MILLIGRAM
     Route: 048
     Dates: start: 20101112, end: 20101130

REACTIONS (4)
  - NEUTROPHIL COUNT INCREASED [None]
  - BLAST CELL COUNT INCREASED [None]
  - INTERSTITIAL LUNG DISEASE [None]
  - CARDIAC FAILURE CONGESTIVE [None]
